FAERS Safety Report 9504022 (Version 1)
Quarter: 2013Q3

REPORT INFORMATION
  Report Type: Spontaneous
  Country: US (occurrence: US)
  Receive Date: 20130906
  Receipt Date: 20130906
  Transmission Date: 20140515
  Serious: Yes (Hospitalization, Other)
  Sender: FDA-Public Use
  Company Number: US-JHP PHARMACEUTICALS, LLC-JHP201300529

PATIENT
  Age: 21 Year
  Sex: Male

DRUGS (1)
  1. KETALAR [Suspect]
     Indication: DRUG ABUSE
     Route: 055

REACTIONS (3)
  - Pyelonephritis acute [Recovering/Resolving]
  - Biliary tract disorder [Recovered/Resolved]
  - Cholangitis sclerosing [Recovered/Resolved]
